FAERS Safety Report 7059784-9 (Version None)
Quarter: 2010Q4

REPORT INFORMATION
  Report Type: 
  Country: None (occurrence: None)
  Receive Date: 20101025
  Receipt Date: 20101013
  Transmission Date: 20110411
  Serious: Yes (Hospitalization)
  Sender: FDA-Public Use
  Company Number: JP-PFIZER INC-2010130150

PATIENT
  Age: 73 Year
  Sex: Female

DRUGS (22)
  1. FLUOROURACIL [Suspect]
     Indication: COLORECTAL CANCER
     Dosage: EVERY 2 WEEKS
     Route: 040
     Dates: start: 20090723, end: 20090825
  2. FLUOROURACIL [Suspect]
     Dosage: 2750 MG, 46 HR CONTINUOUS INFUSION, EVERY 2 WEEKS
     Route: 042
     Dates: start: 20090723
  3. *FOLINIC ACID [Suspect]
     Indication: COLORECTAL CANCER
     Dosage: 279 MG, EVERY 2 WEEKS
     Route: 042
     Dates: start: 20090723
  4. SUNITINIB MALATE [Suspect]
     Indication: COLORECTAL CANCER
     Dosage: 12.5 MG, 1X/DAY
     Route: 048
     Dates: start: 20090723, end: 20100929
  5. OXALIPLATIN [Suspect]
     Indication: COLORECTAL CANCER
     Dosage: UNK
     Route: 042
     Dates: start: 20090723, end: 20100107
  6. OXYCODONE HCL [Concomitant]
     Dosage: UNK
     Dates: start: 20101007
  7. NOVAMIN [Concomitant]
     Dosage: UNK
     Dates: start: 20101007, end: 20101009
  8. PARIET [Concomitant]
     Dosage: UNK
     Dates: start: 20090301
  9. HERBAL PREPARATION [Concomitant]
     Dosage: UNK
     Dates: start: 20090301
  10. PURSENNID [Concomitant]
     Dosage: UNK
     Dates: start: 20090301
  11. LOXONIN [Concomitant]
     Dosage: UNK
     Dates: start: 20090915
  12. CYANOCOBALAMIN [Concomitant]
     Dosage: UNK
     Dates: start: 20100325
  13. CEPHADOL [Concomitant]
     Dosage: UNK
     Dates: start: 20100325
  14. MAGNESIUM OXIDE [Concomitant]
     Dosage: UNK
     Dates: start: 20100325
  15. RIZE [Concomitant]
     Dosage: UNK
     Dates: start: 20100916
  16. MYSLEE [Concomitant]
     Dosage: UNK
     Dates: start: 20091009
  17. PYRINAZIN [Concomitant]
     Dosage: UNK
     Dates: start: 20100623
  18. KENALOG [Concomitant]
     Dosage: UNK
     Dates: start: 20090804
  19. HIRUDOID [Concomitant]
     Dosage: UNK
     Dates: start: 20090817
  20. HACHIAZULE [Concomitant]
     Dosage: UNK
     Route: 049
     Dates: start: 20100623
  21. LIDOCAINE HYDROCHLORIDE [Concomitant]
     Dosage: UNK
     Route: 049
     Dates: start: 20100623
  22. BENZETHONIUM CHLORIDE [Concomitant]
     Dosage: UNK
     Route: 049
     Dates: start: 20100623

REACTIONS (1)
  - PULMONARY HYPERTENSION [None]
